FAERS Safety Report 5536817-X (Version None)
Quarter: 2007Q4

REPORT INFORMATION
  Report Type: 
  Country: None (occurrence: None)
  Receive Date: 20071204
  Receipt Date: 20071119
  Transmission Date: 20080405
  Serious: Yes (Hospitalization)
  Sender: FDA-Public Use
  Company Number: S07-FRA-06081-01

PATIENT
  Age: 83 Year
  Sex: Male

DRUGS (6)
  1. ESCITALOPRAM [Suspect]
     Indication: MAJOR DEPRESSION
     Dosage: 10 MG QD;PO
     Route: 048
     Dates: start: 20071101
  2. PREVISCAN (FLUINDIONE) [Concomitant]
  3. KARDEGIC (ACETYLSALYLATE LYSINE) [Concomitant]
  4. PERINDOPRIL ERBUMINE [Concomitant]
  5. ATENOLOL [Concomitant]
  6. INERGY (EZETIMIBE/SIMVASTATIN) [Concomitant]

REACTIONS (2)
  - CARDIAC DISORDER [None]
  - CORONARY ARTERY DISEASE [None]
